FAERS Safety Report 6383366-5 (Version None)
Quarter: 2009Q4

REPORT INFORMATION
  Report Type: 
  Country: None (occurrence: None)
  Receive Date: 20091001
  Receipt Date: 20090917
  Transmission Date: 20100525
  Serious: Yes (Other)
  Sender: FDA-Public Use
  Company Number: PHEH2009US11075

PATIENT
  Sex: Female

DRUGS (6)
  1. DIOVAN [Suspect]
     Dosage: 80 MG, UNK
  2. CARDIZEM [Suspect]
     Dosage: 180 MG, UNK
  3. CARDIZEM [Suspect]
     Dosage: 240 MG, UNK
  4. MIAXAN [Concomitant]
  5. VITAMINS [Concomitant]
  6. LASIX [Concomitant]

REACTIONS (4)
  - CHEST PAIN [None]
  - DIZZINESS [None]
  - HEAD TITUBATION [None]
  - HERPES ZOSTER [None]
